FAERS Safety Report 20450279 (Version 1)
Quarter: 2022Q1

REPORT INFORMATION
  Report Type: Spontaneous
  Country: CO (occurrence: CO)
  Receive Date: 20220209
  Receipt Date: 20220209
  Transmission Date: 20220424
  Serious: Yes (Hospitalization)
  Sender: FDA-Public Use
  Company Number: CO-GLAXOSMITHKLINE-CO2022AMR012109

PATIENT
  Age: 2 Year
  Sex: Male

DRUGS (2)
  1. ALBUTEROL [Suspect]
     Active Substance: ALBUTEROL
     Indication: Lower respiratory tract infection
     Dosage: 6 DF, Z, 6 DROPS TO NEBULIZE EVERY 3 HRS
     Route: 055
     Dates: start: 20211121
  2. ALBUTEROL [Suspect]
     Active Substance: ALBUTEROL
     Indication: Laryngotracheitis obstructive

REACTIONS (5)
  - Tachycardia [Recovered/Resolved]
  - Hyperglycaemia [Recovered/Resolved]
  - Heart rate increased [Recovered/Resolved]
  - Extra dose administered [Unknown]
  - Product use in unapproved indication [Unknown]

NARRATIVE: CASE EVENT DATE: 20211101
